FAERS Safety Report 9146505 (Version 1)
Quarter: 2013Q1

REPORT INFORMATION
  Report Type: Spontaneous
  Country: US (occurrence: US)
  Receive Date: 20130307
  Receipt Date: 20130307
  Transmission Date: 20140127
  Serious: No
  Sender: FDA-Public Use
  Company Number: US-GLAXOSMITHKLINE-A0982176A

PATIENT
  Sex: Female

DRUGS (6)
  1. REQUIP [Suspect]
     Indication: RESTLESS LEGS SYNDROME
     Dosage: 1MG PER DAY
     Route: 048
  2. GLUCOSAMINE [Concomitant]
  3. TEGRETOL [Concomitant]
  4. NEXIUM [Concomitant]
  5. KLONOPIN [Concomitant]
  6. BACLOFEN [Concomitant]

REACTIONS (7)
  - Pain in extremity [Unknown]
  - Nausea [Unknown]
  - Vomiting [Unknown]
  - Dizziness [Unknown]
  - Somnolence [Unknown]
  - Overdose [Unknown]
  - Drug effect decreased [Unknown]
